FAERS Safety Report 16399508 (Version 2)
Quarter: 2019Q3

REPORT INFORMATION
  Report Type: Spontaneous
  Country: US (occurrence: US)
  Receive Date: 20190606
  Receipt Date: 20190819
  Transmission Date: 20191004
  Serious: No
  Sender: FDA-Public Use
  Company Number: US-INCYTE CORPORATION-2019IN005501

PATIENT

DRUGS (4)
  1. ISOSORBIDE. [Concomitant]
     Active Substance: ISOSORBIDE
     Indication: ESSENTIAL HYPERTENSION
     Dosage: 20 MILLIGRAM, QD
     Route: 065
  2. JAKAFI [Suspect]
     Active Substance: RUXOLITINIB
     Indication: POLYCYTHAEMIA VERA
     Dosage: 10 MILLIGRAM, QD
     Route: 048
     Dates: start: 20150825
  3. JAKAFI [Suspect]
     Active Substance: RUXOLITINIB
     Dosage: 10 MILLIGRAM, QD
     Route: 048
     Dates: start: 20150831
  4. ASA [Suspect]
     Active Substance: ASPIRIN
     Indication: TRANSIENT ISCHAEMIC ATTACK
     Dosage: 325 MILLIGRAM, QD
     Route: 065

REACTIONS (15)
  - Fall [Unknown]
  - Sleep disorder [Unknown]
  - Nocturia [Unknown]
  - Bone pain [Unknown]
  - Inappropriate schedule of product administration [Unknown]
  - Haemoglobin decreased [Unknown]
  - Asthenia [Unknown]
  - Arthralgia [Unknown]
  - Tinnitus [Unknown]
  - Balance disorder [Unknown]
  - Increased tendency to bruise [Unknown]
  - Dyspnoea exertional [Unknown]
  - Splenomegaly [Unknown]
  - Headache [Unknown]
  - Fatigue [Unknown]

NARRATIVE: CASE EVENT DATE: 20150825
